FAERS Safety Report 25928894 (Version 1)
Quarter: 2025Q4

REPORT INFORMATION
  Report Type: Other
  Country: US (occurrence: US)
  Receive Date: 20251016
  Receipt Date: 20251016
  Transmission Date: 20260118
  Serious: Yes (Death)
  Sender: TAMARANG PHARMACEUTICALS
  Company Number: US-Tamarang, S.A.-2186680

PATIENT
  Age: 25 Year
  Sex: Male

DRUGS (8)
  1. SUGAMMADEX [Suspect]
     Active Substance: SUGAMMADEX
  2. PROPOFOL [Concomitant]
     Active Substance: PROPOFOL
  3. NOREPINEPHRINE [Interacting]
     Active Substance: NOREPINEPHRINE
  4. EPINEPHRINE [Interacting]
     Active Substance: EPINEPHRINE
  5. HYDROCORTISONE ACETATE [Interacting]
     Active Substance: HYDROCORTISONE ACETATE
  6. DIPHENHYDRAMINE [Interacting]
     Active Substance: DIPHENHYDRAMINE
  7. ROCURONIUM [Concomitant]
     Active Substance: ROCURONIUM BROMIDE
  8. FENTANYL [Concomitant]
     Active Substance: FENTANYL

REACTIONS (2)
  - Anaphylactic reaction [Fatal]
  - Brain death [Fatal]
